FAERS Safety Report 4480554-X (Version None)
Quarter: 2004Q4

REPORT INFORMATION
  Report Type: 
  Country: None (occurrence: None)
  Receive Date: 20041019
  Receipt Date: 20041008
  Transmission Date: 20050328
  Serious: Yes (Hospitalization)
  Sender: FDA-Public Use
  Company Number: 2004PK01673

PATIENT
  Age: 42 Year
  Sex: Female

DRUGS (13)
  1. SEROQUEL [Suspect]
     Dosage: 50 T0 400 MG
     Dates: start: 20040623, end: 20040629
  2. SEROQUEL [Suspect]
     Dosage: 500 TO 600 MG
     Dates: start: 20040630, end: 20040728
  3. SEROQUEL [Suspect]
     Dosage: 700 MG DAILY PO
     Route: 048
     Dates: start: 20040729, end: 20040729
  4. SEROQUEL [Suspect]
     Dosage: 800 MG DAILY PO
     Route: 048
     Dates: start: 20040730, end: 20040809
  5. SEROQUEL [Suspect]
     Dosage: 600 MG DAILY PO
     Route: 048
     Dates: start: 20040810, end: 20040810
  6. SEROQUEL [Suspect]
     Dosage: 400 MG DAILY PO
     Route: 048
     Dates: start: 20040811, end: 20040813
  7. SEROQUEL [Suspect]
     Dosage: 200 MG DAILY PO
     Route: 048
     Dates: start: 20040814, end: 20040816
  8. CLOPIXOL [Suspect]
     Dosage: 20 MG DAILY PO
     Route: 048
     Dates: start: 20040624, end: 20040730
  9. CLOPIXOL [Suspect]
     Dosage: 15 MG DAILY PO
     Route: 048
     Dates: start: 20040731, end: 20040731
  10. CLOPIXOL [Suspect]
     Dosage: 10 MG DAILY PO
     Route: 048
     Dates: start: 20040801
  11. EFFEXOR [Concomitant]
  12. TOPAMAX [Concomitant]
  13. AKINETON [Concomitant]

REACTIONS (5)
  - DEPRESSION [None]
  - DISEASE RECURRENCE [None]
  - GALACTORRHOEA [None]
  - PSYCHIATRIC SYMPTOM [None]
  - SUICIDAL IDEATION [None]
